FAERS Safety Report 21018570 (Version 1)
Quarter: 2022Q2

REPORT INFORMATION
  Report Type: Spontaneous
  Country: FR (occurrence: FR)
  Receive Date: 20220628
  Receipt Date: 20220628
  Transmission Date: 20220721
  Serious: Yes (Hospitalization)
  Sender: FDA-Public Use
  Company Number: FR-BEXIMCO-2022BEX00041

PATIENT
  Age: 45 Year
  Sex: Male

DRUGS (3)
  1. BACLOFEN [Suspect]
     Active Substance: BACLOFEN
     Indication: Alcoholism
     Dosage: UNK; INITIAL USE
     Route: 065
     Dates: start: 2020
  2. BACLOFEN [Suspect]
     Active Substance: BACLOFEN
     Dosage: UNK; RE-CHALLENGE
     Route: 065
  3. ALCOHOL [Concomitant]
     Active Substance: ALCOHOL
     Route: 065

REACTIONS (1)
  - Psoriasis [Recovered/Resolved]

NARRATIVE: CASE EVENT DATE: 20200101
